FAERS Safety Report 7507166-5 (Version None)
Quarter: 2011Q2

REPORT INFORMATION
  Report Type: 
  Country: None (occurrence: None)
  Receive Date: 20110526
  Receipt Date: 20110511
  Transmission Date: 20111010
  Serious: Yes (Other)
  Sender: FDA-Public Use
  Company Number: US-BAYER-2011-042332

PATIENT
  Age: 64 Year
  Sex: Male

DRUGS (2)
  1. MAGNESIUM HYDROXIDE TAB [Suspect]
     Indication: CONSTIPATION
     Dosage: UNK, QD, TOTAL VOLUME 26OZ
     Route: 048
  2. ANALGESICS [Concomitant]

REACTIONS (1)
  - DRUG DEPENDENCE [None]
